FAERS Safety Report 17650035 (Version 1)
Quarter: 2020Q2

REPORT INFORMATION
  Report Type: Spontaneous
  Country: US (occurrence: US)
  Receive Date: 20200408
  Receipt Date: 20200408
  Transmission Date: 20200713
  Serious: Yes (Hospitalization)
  Sender: FDA-Public Use
  Company Number: None

PATIENT
  Sex: Male

DRUGS (13)
  1. AMAIODARONE [Concomitant]
  2. WARFARIN [Concomitant]
     Active Substance: WARFARIN
  3. FORTEO [Suspect]
     Active Substance: TERIPARATIDE
     Indication: PRODUCT USED FOR UNKNOWN INDICATION
     Route: 058
     Dates: start: 20191008
  4. DOXAZOSIN [Concomitant]
     Active Substance: DOXAZOSIN MESYLATE
  5. DOXYCYC [Concomitant]
  6. PREDNISONE. [Concomitant]
     Active Substance: PREDNISONE
  7. VALACYCLOVIR [Concomitant]
     Active Substance: VALACYCLOVIR HYDROCHLORIDE
  8. POLYMYXCIN [Concomitant]
  9. CALCITRIOL. [Concomitant]
     Active Substance: CALCITRIOL
  10. METOPROLOL TARTRATE. [Concomitant]
     Active Substance: METOPROLOL TARTRATE
  11. CLONAZEPAM. [Concomitant]
     Active Substance: CLONAZEPAM
  12. PRAVASTATIN. [Concomitant]
     Active Substance: PRAVASTATIN
  13. LEVOTHYROXIN [Concomitant]
     Active Substance: LEVOTHYROXINE

REACTIONS (2)
  - Hospitalisation [None]
  - Therapy interrupted [None]
